FAERS Safety Report 6285664-2 (Version None)
Quarter: 2009Q3

REPORT INFORMATION
  Report Type: 
  Country: None (occurrence: None)
  Receive Date: 20090724
  Receipt Date: 20090713
  Transmission Date: 20100115
  Serious: Yes (Hospitalization)
  Sender: FDA-Public Use
  Company Number: A-US2009-25991

PATIENT
  Age: 71 Year
  Sex: Female

DRUGS (5)
  1. TRACLEER [Suspect]
     Indication: PULMONARY ARTERIAL HYPERTENSION
     Dosage: 62.5 MG, BID, ORAL
     Route: 048
     Dates: start: 20090605
  2. WARFARIN SODIUM [Concomitant]
  3. RYTHMOL [Concomitant]
  4. SYNTHROID [Concomitant]
  5. PROCARDIA [Concomitant]

REACTIONS (3)
  - CARDIAC PACEMAKER MALFUNCTION [None]
  - DIZZINESS [None]
  - SYNCOPE [None]
